FAERS Safety Report 20389701 (Version 1)
Quarter: 2022Q1

REPORT INFORMATION
  Report Type: Report from Study
  Country: US (occurrence: None)
  Receive Date: 20220128
  Receipt Date: 20220128
  Transmission Date: 20220423
  Serious: Yes (Hospitalization)
  Sender: FDA-Public Use
  Company Number: US-ROCHE-3005330

PATIENT
  Age: 46 Year
  Sex: Female
  Weight: 143.8 kg

DRUGS (4)
  1. TRASTUZUMAB [Suspect]
     Active Substance: TRASTUZUMAB
     Indication: Colorectal cancer metastatic
     Dosage: OVER 30-120 MINUTES ON DAY 1
     Route: 041
     Dates: start: 20210426
  2. PERTUZUMAB [Suspect]
     Active Substance: PERTUZUMAB
     Indication: Colorectal cancer metastatic
     Dosage: OVER 30-60 MINUTES ON DAY 1
     Route: 042
     Dates: start: 20210426
  3. IRINOTECAN [Suspect]
     Active Substance: IRINOTECAN
     Indication: Colorectal cancer metastatic
     Dosage: OVER 90 MINUTES ON DAY 1. LAST ADMINISTERED DATE WAS 18/OCT/2021
     Route: 042
     Dates: start: 20210426
  4. CETUXIMAB [Suspect]
     Active Substance: CETUXIMAB
     Indication: Colorectal cancer metastatic
     Dosage: OVER 60-120 MINUTES ON DAY 1. LAST ADMINISTERED DATE WAS 18/OCT/2021
     Route: 042
     Dates: start: 20210426

REACTIONS (1)
  - Appendicitis [Recovered/Resolved with Sequelae]

NARRATIVE: CASE EVENT DATE: 20211104
